FAERS Safety Report 8366098-3 (Version None)
Quarter: 2012Q2

REPORT INFORMATION
  Report Type: 
  Country: None (occurrence: None)
  Receive Date: 20120517
  Receipt Date: 20120509
  Transmission Date: 20120825
  Serious: Yes (Death, Other)
  Sender: FDA-Public Use
  Company Number: IT-MPIJNJ-2012-02568

PATIENT

DRUGS (5)
  1. MELPHALAN HYDROCHLORIDE [Suspect]
     Indication: LEUKAEMIA PLASMACYTIC
     Dosage: 200 MG/M2, UNK
  2. THALIDOMIDE [Suspect]
     Indication: LEUKAEMIA PLASMACYTIC
     Dosage: 100 MG, QD
  3. VELCADE [Suspect]
     Indication: LEUKAEMIA PLASMACYTIC
     Dosage: 1.3 MG/M2, CYCLIC
  4. DOXORUBICIN HCL [Suspect]
     Indication: LEUKAEMIA PLASMACYTIC
     Dosage: 20 MG, CYCLIC
  5. DEXAMETHASONE [Suspect]
     Indication: LEUKAEMIA PLASMACYTIC
     Dosage: 40 MG, CYCLIC

REACTIONS (2)
  - LEUKAEMIA PLASMACYTIC [None]
  - HEPATITIS B [None]
